FAERS Safety Report 19012364 (Version 1)
Quarter: 2021Q1

REPORT INFORMATION
  Report Type: Spontaneous
  Country: US (occurrence: US)
  Receive Date: 20210315
  Receipt Date: 20210315
  Transmission Date: 20210420
  Serious: No
  Sender: FDA-Public Use
  Company Number: US-CELGENEUS-USA-20210302053

PATIENT
  Sex: Female

DRUGS (5)
  1. THALOMID [Suspect]
     Active Substance: THALIDOMIDE
     Indication: OFF LABEL USE
  2. THALOMID [Suspect]
     Active Substance: THALIDOMIDE
     Indication: THROMBOCYTOSIS
  3. THALOMID [Suspect]
     Active Substance: THALIDOMIDE
     Indication: BENIGN NEOPLASM
  4. THALOMID [Suspect]
     Active Substance: THALIDOMIDE
     Indication: GASTROINTESTINAL ARTERIOVENOUS MALFORMATION
     Dosage: 100 MILLIGRAM
     Route: 048
     Dates: start: 20201127
  5. THALOMID [Suspect]
     Active Substance: THALIDOMIDE
     Indication: GASTROINTESTINAL VASCULAR MALFORMATION HAEMORRHAGIC
     Dosage: 100 MILLIGRAM
     Route: 048
     Dates: start: 202101

REACTIONS (1)
  - Adverse drug reaction [Unknown]
